FAERS Safety Report 21176258 (Version 1)
Quarter: 2022Q3

REPORT INFORMATION
  Report Type: Spontaneous
  Country: FR (occurrence: FR)
  Receive Date: 20220805
  Receipt Date: 20220805
  Transmission Date: 20221027
  Serious: Yes (Life-Threatening, Hospitalization)
  Sender: FDA-Public Use
  Company Number: None

PATIENT
  Age: 56 Year
  Sex: Male
  Weight: 90 kg

DRUGS (8)
  1. FUROSEMIDE [Suspect]
     Active Substance: FUROSEMIDE
     Indication: Product used for unknown indication
     Dosage: FREQUENCY TIME : 1 DAY, DURATION: 13 DAYS, UNIT DOSE: 20 MG
     Dates: start: 20220617, end: 20220630
  2. PANTOPRAZOLE [Suspect]
     Active Substance: PANTOPRAZOLE
     Indication: Product used for unknown indication
     Dosage: FREQUENCY TIME : 1 DAY, UNIT DOSE: 40 MG
     Dates: start: 20220524
  3. CEFTRIAXONE SODIUM [Suspect]
     Active Substance: CEFTRIAXONE SODIUM
     Indication: Endocarditis bacterial
     Dosage: FREQUENCY TIME: 1 DAY, DURATION: 13 DAYS, UNIT DOSE: 1 GM, CEFTRIAXONE SODIQUE
     Dates: start: 20220607, end: 20220620
  4. AUGMENTIN [Suspect]
     Active Substance: AMOXICILLIN\CLAVULANATE POTASSIUM
     Indication: Endocarditis bacterial
     Dosage: FREQUENCY TIME : 8 HOURS, DURATION: 1 DAY, UNIT DOSE: 1 GM
     Dates: start: 20220630, end: 20220630
  5. VANCOMYCIN [Suspect]
     Active Substance: VANCOMYCIN
     Indication: Endocarditis bacterial
     Dosage: FREQUENCY TIME : 12 HOURS, DURATION: 11 DAYS, UNIT DOSE: 1 GM, VANCOMYCINE
     Dates: start: 20220630, end: 20220711
  6. GENTAMICIN [Suspect]
     Active Substance: GENTAMICIN
     Indication: Endocarditis bacterial
     Dosage: FREQUENCY TIME : 1 DAY, DURATION: 2 DAYS, UNIT DOSE: 270 MG
     Dates: start: 20220704, end: 20220706
  7. RIFAXIMIN [Suspect]
     Active Substance: RIFAXIMIN
     Indication: Endocarditis bacterial
     Dosage: FREQUENCY TIME : 12 HOURS, DURATION: 3 DAYS, UNIT DOSE: 550 MG, TIXTAR 550 MG
     Dates: start: 20220701, end: 20220704
  8. PAXLOVID [Suspect]
     Active Substance: NIRMATRELVIR\RITONAVIR
     Indication: COVID-19
     Dosage: FREQUENCY TIME : 12 HOURS, DURATION: 5 DAYS, UNIT DOSE: 2 DF, PAXLOVID 150 MG + 100 MG
     Dates: start: 20220702, end: 20220707

REACTIONS (1)
  - Stevens-Johnson syndrome [Not Recovered/Not Resolved]

NARRATIVE: CASE EVENT DATE: 20220710
